FAERS Safety Report 4460471-1 (Version None)
Quarter: 2004Q3

REPORT INFORMATION
  Report Type: 
  Country: None (occurrence: None)
  Receive Date: 20040928
  Receipt Date: 20040824
  Transmission Date: 20050211
  Serious: No
  Sender: FDA-Public Use
  Company Number: US-GLAXOSMITHKLINE-A0523322A

PATIENT
  Age: 55 Year
  Sex: Male

DRUGS (6)
  1. SEREVENT [Suspect]
     Route: 055
     Dates: start: 20040801
  2. ACCOLATE [Concomitant]
     Route: 065
  3. SYNTHROID [Concomitant]
  4. FLONASE [Concomitant]
  5. FLOVENT [Concomitant]
  6. ALBUTEROL [Concomitant]

REACTIONS (1)
  - DRUG INEFFECTIVE [None]
